FAERS Safety Report 16575029 (Version 1)
Quarter: 2019Q3

REPORT INFORMATION
  Report Type: Spontaneous
  Country: AU (occurrence: AU)
  Receive Date: 20190715
  Receipt Date: 20190715
  Transmission Date: 20191004
  Serious: Yes (Death, Hospitalization)
  Sender: FDA-Public Use
  Company Number: PHHY2019AU162333

PATIENT
  Age: 67 Year
  Sex: Female

DRUGS (1)
  1. PARACETAMOL [Suspect]
     Active Substance: ACETAMINOPHEN
     Indication: PRODUCT USED FOR UNKNOWN INDICATION
     Dosage: 6 G, QD
     Route: 065

REACTIONS (7)
  - Hepatotoxicity [Unknown]
  - Acute hepatic failure [Fatal]
  - Jaundice [Fatal]
  - Sepsis [Fatal]
  - Overdose [Unknown]
  - Cardiac failure [Fatal]
  - Alanine aminotransferase increased [Fatal]
